FAERS Safety Report 6200234-X (Version None)
Quarter: 2009Q2

REPORT INFORMATION
  Report Type: 
  Country: None (occurrence: None)
  Receive Date: 20090522
  Receipt Date: 20070811
  Transmission Date: 20091009
  Serious: No
  Sender: FDA-Public Use
  Company Number: US-ALEXION-A200700046

PATIENT
  Sex: Female
  Weight: 79.365 kg

DRUGS (17)
  1. SOLIRIS [Suspect]
     Indication: PAROXYSMAL NOCTURNAL HAEMOGLOBINURIA
     Dosage: 600 MG, SINGLE
     Route: 042
     Dates: start: 20070502, end: 20070502
  2. SOLIRIS [Suspect]
     Dosage: 600 MG, SINGLE
     Route: 042
     Dates: start: 20070509, end: 20070509
  3. SOLIRIS [Suspect]
     Dosage: 600 MG, SINGLE
     Route: 042
     Dates: start: 20070516, end: 20070516
  4. SOLIRIS [Suspect]
     Dosage: 600 MG, SINGLE
     Route: 042
     Dates: start: 20070523, end: 20070523
  5. SOLIRIS [Suspect]
     Dosage: 900 MG, SINGLE
     Route: 042
     Dates: start: 20070530, end: 20070530
  6. SOLIRIS [Suspect]
     Dosage: 900 MG, SINGLE
     Route: 042
     Dates: start: 20070613, end: 20070613
  7. SOLIRIS [Suspect]
     Dosage: 900 MG, SINGLE
     Route: 042
     Dates: start: 20070627, end: 20070627
  8. SOLIRIS [Suspect]
     Dosage: 900 MG, SINGLE
     Route: 042
     Dates: start: 20070711, end: 20070711
  9. SOLIRIS [Suspect]
     Dosage: 900 MG, SINGLE
     Route: 042
     Dates: start: 20070725, end: 20070725
  10. SOLIRIS [Suspect]
     Dosage: 900 MG, SINGLE
     Route: 042
     Dates: start: 20070809, end: 20070809
  11. PREDNISONE [Concomitant]
     Dosage: 10 MG, QOD
     Route: 048
  12. FOLIC ACID [Concomitant]
     Dosage: 3 TABLETS, QD
     Route: 048
  13. OMEPRAZOLE [Concomitant]
     Dosage: UNK, BID
     Route: 048
  14. CALCIUM [Concomitant]
     Dosage: UNK, QD
     Route: 048
  15. VITAMINS [Concomitant]
     Dosage: UNK, QD
     Route: 048
  16. GLUCOSAMINE [Concomitant]
     Dosage: UNK, QD
     Route: 048
  17. CHONDROITIN [Concomitant]
     Dosage: UNK, QD
     Route: 048

REACTIONS (5)
  - FACIAL PAIN [None]
  - HEADACHE [None]
  - RASH ERYTHEMATOUS [None]
  - RASH PRURITIC [None]
  - SWELLING FACE [None]
